FAERS Safety Report 8553707-9 (Version None)
Quarter: 2012Q3

REPORT INFORMATION
  Report Type: 
  Country: None (occurrence: None)
  Receive Date: 20120731
  Receipt Date: 20120726
  Transmission Date: 20120928
  Serious: Yes (Death, Hospitalization)
  Sender: FDA-Public Use
  Company Number: GB-PFIZER INC-2012162061

PATIENT
  Age: 69 Year
  Sex: Female
  Weight: 181 kg

DRUGS (5)
  1. AMLODIPINE [Concomitant]
     Indication: HYPERTENSION
     Dosage: 10 MG, 2X/DAY
     Route: 048
     Dates: start: 20120525
  2. MACROGOL [Concomitant]
     Indication: CONSTIPATION
     Dosage: 1 SACHET, 2X/DAY
     Route: 048
     Dates: start: 20120619
  3. BISOPROLOL [Concomitant]
     Indication: SINUS TACHYCARDIA
     Dosage: 1.25 MG, 1X/DAY
     Route: 048
     Dates: start: 20120620
  4. AXITINIB [Suspect]
     Indication: SARCOMA
     Dosage: 5 MG, CYCLIC
     Route: 048
     Dates: start: 20120531, end: 20120701
  5. CYCLIZINE [Concomitant]
     Indication: NAUSEA
     Dosage: 30 MG, 3X/DAY
     Route: 048
     Dates: start: 20120619

REACTIONS (3)
  - VOMITING [None]
  - FATIGUE [None]
  - HAEMOPTYSIS [None]
